FAERS Safety Report 4267274-1 (Version None)
Quarter: 2004Q1

REPORT INFORMATION
  Report Type: 
  Country: None (occurrence: None)
  Receive Date: 20040107
  Receipt Date: 20031229
  Transmission Date: 20041129
  Serious: Yes (Hospitalization)
  Sender: FDA-Public Use
  Company Number: 2003038848

PATIENT
  Age: 75 Year
  Sex: Female

DRUGS (3)
  1. LIPITOR [Suspect]
     Indication: HYPERCHOLESTEROLAEMIA
     Dosage: 20 MG (DAILY), ORAL
     Route: 048
     Dates: start: 19990121, end: 20030813
  2. DOXAZOSIN MESLYLATE [Concomitant]
  3. DILTIAZEM HYDROCHLORIDE [Concomitant]

REACTIONS (1)
  - HEPATITIS TOXIC [None]
